FAERS Safety Report 5730448-4 (Version None)
Quarter: 2008Q2

REPORT INFORMATION
  Report Type: 
  Country: None (occurrence: None)
  Receive Date: 20080507
  Receipt Date: 20080429
  Transmission Date: 20081010
  Serious: Yes (Hospitalization)
  Sender: FDA-Public Use
  Company Number: FR-ASTRAZENECA-2008CG00662

PATIENT
  Age: 17725 Day
  Sex: Female

DRUGS (6)
  1. OMEPRAZOLE [Suspect]
     Route: 048
     Dates: end: 20071127
  2. EFFEXOR [Suspect]
     Indication: DEPRESSION
     Route: 048
     Dates: start: 20071115, end: 20071127
  3. MEPRONIZINE [Suspect]
     Route: 048
     Dates: end: 20071127
  4. ATARAX [Suspect]
     Route: 048
     Dates: end: 20071127
  5. NORDAZ [Suspect]
     Route: 048
     Dates: end: 20071127
  6. PARACETAMOL [Concomitant]

REACTIONS (5)
  - ARTHRALGIA [None]
  - CYTOLYTIC HEPATITIS [None]
  - DRUG RASH WITH EOSINOPHILIA AND SYSTEMIC SYMPTOMS [None]
  - INFLUENZA LIKE ILLNESS [None]
  - RASH [None]
